FAERS Safety Report 6117350-3 (Version None)
Quarter: 2009Q1

REPORT INFORMATION
  Report Type: 
  Country: None (occurrence: None)
  Receive Date: 20090314
  Receipt Date: 20090121
  Transmission Date: 20090719
  Serious: Yes (Other)
  Sender: FDA-Public Use
  Company Number: US-ABBOTT-09P-163-0498076-00

PATIENT
  Sex: Female
  Weight: 63.56 kg

DRUGS (3)
  1. HUMIRA [Suspect]
     Indication: RHEUMATOID ARTHRITIS
     Route: 058
     Dates: start: 20080901
  2. CARDIVAL [Concomitant]
     Indication: CARDIAC FAILURE CONGESTIVE
     Dosage: UNKNOWN
  3. DIURETIC [Concomitant]
     Indication: CARDIAC FAILURE CONGESTIVE
     Dosage: UNKNOWN

REACTIONS (3)
  - CATARACT [None]
  - FOREIGN BODY SENSATION IN EYES [None]
  - TOOTH DISORDER [None]
